FAERS Safety Report 6248003-9 (Version None)
Quarter: 2009Q2

REPORT INFORMATION
  Report Type: 
  Country: None (occurrence: None)
  Receive Date: 20090626
  Receipt Date: 20090615
  Transmission Date: 20091009
  Serious: Yes (Other)
  Sender: FDA-Public Use
  Company Number: ES-AMGEN-US353078

PATIENT
  Age: 58 Year
  Sex: Male
  Weight: 85 kg

DRUGS (1)
  1. ENBREL [Suspect]
     Indication: RHEUMATOID ARTHRITIS
     Dosage: UNKNOWN DOSE ONCE PER WEEK
     Route: 065
     Dates: start: 20080213

REACTIONS (3)
  - DENTAL CARIES [None]
  - TOOTH FRACTURE [None]
  - TOOTHACHE [None]
